FAERS Safety Report 9838762 (Version 1)
Quarter: 2013Q4

REPORT INFORMATION
  Report Type: Spontaneous
  Country: US (occurrence: None)
  Receive Date: 20131206
  Receipt Date: 20131206
  Transmission Date: 20140711
  Serious: Yes (Other)
  Sender: FDA-Public Use
  Company Number: 1000041116

PATIENT
  Age: 69 Year
  Sex: Male
  Weight: 100.2 kg

DRUGS (16)
  1. NAMENDA [Suspect]
     Indication: DEMENTIA
     Dosage: 5MG (5 MG, 1 IN 1 D, ORAL)
     Route: 048
     Dates: start: 20121105, end: 20121111
  2. ARICEPT (DONEPEZIL HYDROCHLORIDE) (DONEPEZIL HYDORCHLORIDE)? [Concomitant]
  3. GLIMEPIRIDE (GLIMEPIRIDE) (4 MILLIGRAM, TABLETS) (GLIMEPIRIDE) [Concomitant]
  4. ACTOS (PIOGLITAZONE HYDROCHLORIDE) (PIOGLITAZONE HYDROCHLORIDE) [Concomitant]
  5. LANTUS (INSULIN GLARGINE) (INSULIN GLARGINE) [Concomitant]
  6. HUMULIN REGULAR (INSULIN HUMAN) (INSULIN HUMAN) [Concomitant]
  7. PLAVIX (CLOPIDOGREL BISULFATE) (CLOPIDOGREL BISULFATE) [Concomitant]
  8. PAXIL (PAROXETINE HYDROCHLORIDE) (PAROXETINE HYDROCHLORIDE) [Concomitant]
  9. CRESTOR (ROSUVASTATIN CALCIUM) (ROSUVASTATIN CALCIUM) [Concomitant]
  10. LISINOPRIL (LISINOPRIL) (LISINOPRIL) [Concomitant]
  11. FENOFIBRATE (FENOFIBRATE) (FENOFIBRATE) [Concomitant]
  12. ASPIRIN (ACETYLSALICYLIC ACID) (ACETYLSALICYLIC ACID) [Concomitant]
  13. VIT D3 (COLECALCIFEROL) (COLECALCIFEROL)? [Concomitant]
  14. VIT B (COMPLEX (VITAMIN B COMPLEX) (VITAMIN B COMPLEX) [Concomitant]
  15. VIT E (VIT E) (VIT E) [Concomitant]
  16. TRAVATAN (TRAVOPROST) (TRAVOSPROST) [Concomitant]

REACTIONS (2)
  - Hypoglycaemia [None]
  - Confusional state [None]
